FAERS Safety Report 25572635 (Version 1)
Quarter: 2025Q3

REPORT INFORMATION
  Report Type: Spontaneous
  Country: US (occurrence: US)
  Receive Date: 20250717
  Receipt Date: 20250717
  Transmission Date: 20251021
  Serious: Yes (Hospitalization)
  Sender: BIOCON
  Company Number: US-BIOCON BIOLOGICS LIMITED-BBL2025003766

PATIENT

DRUGS (2)
  1. TRASTUZUMAB [Suspect]
     Active Substance: TRASTUZUMAB
     Indication: Adenocarcinoma gastric
     Route: 065
  2. PEMBROLIZUMAB [Suspect]
     Active Substance: PEMBROLIZUMAB
     Indication: Adenocarcinoma gastric
     Route: 065

REACTIONS (3)
  - Secondary adrenocortical insufficiency [Recovering/Resolving]
  - Hypophysitis [Recovering/Resolving]
  - Pleural effusion [Recovering/Resolving]
